FAERS Safety Report 21145084 (Version 1)
Quarter: 2022Q3

REPORT INFORMATION
  Report Type: Spontaneous
  Country: FI (occurrence: FI)
  Receive Date: 20220729
  Receipt Date: 20220729
  Transmission Date: 20221027
  Serious: Yes (Death, Other)
  Sender: FDA-Public Use
  Company Number: FI-ALVOGEN-2022-ALVOGEN-120685

PATIENT
  Age: 52 Year
  Sex: Female

DRUGS (1)
  1. BUPRENORPHINE [Suspect]
     Active Substance: BUPRENORPHINE
     Indication: Drug abuse

REACTIONS (2)
  - Cerebral haemorrhage [Fatal]
  - Drug abuse [Unknown]
